FAERS Safety Report 5973417-1 (Version None)
Quarter: 2008Q4

REPORT INFORMATION
  Report Type: 
  Country: None (occurrence: None)
  Receive Date: 20081201
  Receipt Date: 20081121
  Transmission Date: 20090506
  Serious: Yes (Other)
  Sender: FDA-Public Use
  Company Number: JP-BAYER-200812865BYL

PATIENT
  Age: 76 Year
  Sex: Female
  Weight: 44 kg

DRUGS (8)
  1. NEXAVAR [Suspect]
     Indication: RENAL CELL CARCINOMA STAGE IV
     Dosage: TOTAL DAILY DOSE: 800 MG  UNIT DOSE: 200 G
     Route: 048
     Dates: start: 20080613
  2. AMLODIN OD [Concomitant]
     Indication: HYPERTENSION
     Dosage: TOTAL DAILY DOSE: 2.5 MG  UNIT DOSE: 2.5 MG
     Route: 048
     Dates: start: 20080610
  3. CALONAL [Concomitant]
     Dosage: AS USED: 600 MG  UNIT DOSE: 200 MG
     Route: 048
     Dates: start: 20080612
  4. ACTONEL [Concomitant]
     Dosage: TOTAL DAILY DOSE: 2.5 MG  UNIT DOSE: 2.5 MG
     Route: 048
     Dates: start: 20080206
  5. ONEALFA [Concomitant]
     Dosage: TOTAL DAILY DOSE: 0.5 ?G
     Route: 048
     Dates: start: 20080206
  6. CYANOCOBALAMIN [Concomitant]
     Dosage: AS USED: 1000 ?G
     Route: 048
     Dates: start: 20080430
  7. NEUROTROPIN [Concomitant]
     Dosage: AS USED: 16 U
     Route: 048
     Dates: start: 20080430
  8. CELECOX [Concomitant]
     Dosage: AS USED: 200 MG
     Route: 048
     Dates: start: 20071227

REACTIONS (5)
  - BLOOD AMYLASE INCREASED [None]
  - CARDIAC FAILURE [None]
  - HYPERTENSION [None]
  - INTERSTITIAL LUNG DISEASE [None]
  - LIPASE INCREASED [None]
